FAERS Safety Report 21452492 (Version 1)
Quarter: 2022Q4

REPORT INFORMATION
  Report Type: Other
  Country: US (occurrence: None)
  Receive Date: 20221013
  Receipt Date: 20221013
  Transmission Date: 20230113
  Serious: Yes (Other)
  Sender: FDA-Public Use
  Company Number: US-ROCHE-1955133

PATIENT
  Sex: Female
  Weight: 83 kg

DRUGS (16)
  1. RITUXAN [Suspect]
     Active Substance: RITUXIMAB
     Indication: Multiple sclerosis
     Route: 065
     Dates: start: 201708
  2. OCREVUS [Suspect]
     Active Substance: OCRELIZUMAB
     Indication: Primary progressive multiple sclerosis
     Dosage: INFUSE 300 MG ON DAY 1, THEN 300 MG ON DAY 15 THAN 600 MG EVERY 6 MONTHS
     Route: 042
     Dates: start: 20170801, end: 20170815
  3. OCREVUS [Suspect]
     Active Substance: OCRELIZUMAB
     Route: 042
     Dates: end: 20210910
  4. OCREVUS [Suspect]
     Active Substance: OCRELIZUMAB
     Route: 042
     Dates: start: 20191210
  5. OCREVUS [Suspect]
     Active Substance: OCRELIZUMAB
     Route: 042
     Dates: start: 201708
  6. OCREVUS [Suspect]
     Active Substance: OCRELIZUMAB
     Route: 042
     Dates: end: 20220204
  7. ADDERALL [Concomitant]
     Active Substance: AMPHETAMINE ASPARTATE\AMPHETAMINE SULFATE\DEXTROAMPHETAMINE SACCHARATE\DEXTROAMPHETAMINE SULFATE
     Dosage: 1-2 TABLETS DAILY
  8. BACLOFEN [Concomitant]
     Active Substance: BACLOFEN
     Dosage: 1.5 TABLETS THREE TIMES DAILY
  9. ZYBAN [Concomitant]
     Active Substance: BUPROPION HYDROCHLORIDE
  10. LOMOTIL [Concomitant]
     Active Substance: ATROPINE SULFATE\DIPHENOXYLATE HYDROCHLORIDE
  11. GABAPENTIN [Concomitant]
     Active Substance: GABAPENTIN
     Dates: start: 20190808
  12. GABAPENTIN [Concomitant]
     Active Substance: GABAPENTIN
  13. KEPPRA [Concomitant]
     Active Substance: LEVETIRACETAM
  14. REMERON [Concomitant]
     Active Substance: MIRTAZAPINE
     Dates: start: 20160330
  15. PRIMIDONE [Concomitant]
     Active Substance: PRIMIDONE
  16. ZOLOFT [Concomitant]
     Active Substance: SERTRALINE HYDROCHLORIDE

REACTIONS (4)
  - Off label use [Unknown]
  - Muscular weakness [Not Recovered/Not Resolved]
  - Invasive ductal breast carcinoma [Not Recovered/Not Resolved]
  - Vitamin D deficiency [Unknown]

NARRATIVE: CASE EVENT DATE: 20180817
